FAERS Safety Report 4998036-5 (Version None)
Quarter: 2006Q2

REPORT INFORMATION
  Report Type: 
  Country: None (occurrence: None)
  Receive Date: 20060508
  Receipt Date: 20060505
  Transmission Date: 20061013
  Serious: Yes (Other)
  Sender: FDA-Public Use
  Company Number: 221429

PATIENT
  Sex: Female

DRUGS (2)
  1. RAPTIVA [Suspect]
     Dates: start: 20040422
  2. ANTIDEPRESSANT NOS (ANTIDEPRESSANT NOS) [Concomitant]

REACTIONS (2)
  - DIABETES MELLITUS NON-INSULIN-DEPENDENT [None]
  - FATIGUE [None]
